FAERS Safety Report 7046304-8 (Version None)
Quarter: 2010Q4

REPORT INFORMATION
  Report Type: 
  Country: None (occurrence: None)
  Receive Date: 20101014
  Receipt Date: 20101006
  Transmission Date: 20110411
  Serious: Yes (Other)
  Sender: FDA-Public Use
  Company Number: B0678316A

PATIENT
  Sex: Male

DRUGS (1)
  1. DEROXAT [Suspect]
     Indication: PANIC ATTACK
     Dosage: 10MG PER DAY
     Route: 048
     Dates: start: 20101004

REACTIONS (4)
  - HYPERHIDROSIS [None]
  - INSOMNIA [None]
  - RESTLESS LEGS SYNDROME [None]
  - SUICIDAL IDEATION [None]
